FAERS Safety Report 17962074 (Version 2)
Quarter: 2020Q3

REPORT INFORMATION
  Report Type: Spontaneous
  Country: US (occurrence: US)
  Receive Date: 20200630
  Receipt Date: 20200716
  Transmission Date: 20201103
  Serious: No
  Sender: FDA-Public Use
  Company Number: US-PFIZER INC-2016341223

PATIENT
  Age: 88 Year
  Sex: Female

DRUGS (6)
  1. TRIAMTER?HCTZ [Concomitant]
     Dosage: UNK (HYDROCHLOROTHIAZIDE: 25 MG, TRIAMTERENE: 37.5 MG) (37.5?25 MG)
  2. LYRICA [Suspect]
     Active Substance: PREGABALIN
     Indication: PAIN
     Dosage: 50 MG, 3X/DAY[1 CAPSULE TID (THREE TIMES A DAY)]
     Route: 048
     Dates: start: 20160630
  3. DULOXETINE HCL [Concomitant]
     Active Substance: DULOXETINE HYDROCHLORIDE
     Dosage: 30 MG, 2X/DAY[30 MG BID (TWICE A DAY)]
  4. LYRICA [Suspect]
     Active Substance: PREGABALIN
     Dosage: 50 MG, 1X/DAY
  5. LYRICA [Suspect]
     Active Substance: PREGABALIN
     Dosage: 50 MG 3X/DAY
     Route: 048
  6. ATENOLOL. [Concomitant]
     Active Substance: ATENOLOL
     Dosage: 50 MG, DAILY[50 MG 1 DAILY]

REACTIONS (1)
  - Emotional distress [Unknown]
